FAERS Safety Report 7387397-8 (Version None)
Quarter: 2011Q1

REPORT INFORMATION
  Report Type: 
  Country: None (occurrence: None)
  Receive Date: 20110331
  Receipt Date: 20110322
  Transmission Date: 20110831
  Serious: Yes (Hospitalization, Other)
  Sender: FDA-Public Use
  Company Number: US-ASTRAZENECA-2011SE16123

PATIENT
  Age: 54 Year
  Sex: Female

DRUGS (4)
  1. SEROQUEL [Suspect]
     Dosage: 50 MG IN THE MORNING AND 150 MG AT NIGHT
     Route: 048
  2. TRILIPIX [Concomitant]
  3. CRESTOR [Suspect]
     Route: 048
  4. ALPRAZOLAM [Concomitant]

REACTIONS (5)
  - BLADDER PROLAPSE [None]
  - INSOMNIA [None]
  - NEOPLASM MALIGNANT [None]
  - RADICAL HYSTERECTOMY [None]
  - PERINEOPLASTY [None]
